FAERS Safety Report 23546484 (Version 1)
Quarter: 2024Q1

REPORT INFORMATION
  Report Type: Report from Study
  Country: CA (occurrence: CA)
  Receive Date: 20240220
  Receipt Date: 20240220
  Transmission Date: 20240410
  Serious: Yes (Hospitalization)
  Sender: FDA-Public Use
  Company Number: CA-CELLTRION INC.-2024CA000500

PATIENT

DRUGS (9)
  1. YUFLYMA [Suspect]
     Active Substance: ADALIMUMAB-AATY
     Indication: Rheumatoid arthritis
     Dosage: 40 MG, Q2WEEKS
     Route: 058
     Dates: start: 20231102
  2. METHOTREXATE [Concomitant]
     Active Substance: METHOTREXATE
     Dosage: 25 MG
     Dates: start: 202212
  3. FOLIC ACID [Concomitant]
     Active Substance: FOLIC ACID
  4. EMOLAX [MACROGOL 3350] [Concomitant]
  5. ESTROGENS [Concomitant]
     Active Substance: ESTROGENS
  6. PRAVASTATIN [Concomitant]
     Active Substance: PRAVASTATIN
  7. LORAZEPAM [Concomitant]
     Active Substance: LORAZEPAM
  8. ESOMEPRAZOLE [Concomitant]
     Active Substance: ESOMEPRAZOLE
  9. VENLAFAXINE [Concomitant]
     Active Substance: VENLAFAXINE HYDROCHLORIDE

REACTIONS (3)
  - Respiratory tract infection viral [Unknown]
  - Hospitalisation [Unknown]
  - Intentional dose omission [Unknown]

NARRATIVE: CASE EVENT DATE: 20240111
